FAERS Safety Report 4700877-6 (Version None)
Quarter: 2005Q2

REPORT INFORMATION
  Report Type: 
  Country: None (occurrence: None)
  Receive Date: 20050628
  Receipt Date: 20050624
  Transmission Date: 20051028
  Serious: Yes (Death)
  Sender: FDA-Public Use
  Company Number: NZ-BOEHRINGER INGELHEIM PHARMACEUTICALS, INC.-2005-BP-10748AU

PATIENT

DRUGS (1)
  1. SPIRIVA [Suspect]
     Route: 055

REACTIONS (1)
  - MYOCARDIAL INFARCTION [None]
